FAERS Safety Report 22075336 (Version 1)
Quarter: 2023Q1

REPORT INFORMATION
  Report Type: Spontaneous
  Country: US (occurrence: US)
  Receive Date: 20230308
  Receipt Date: 20230308
  Transmission Date: 20230418
  Serious: No
  Sender: FDA-Public Use
  Company Number: US-TEVA-2023-US-2858618

PATIENT
  Age: 85 Year
  Sex: Male

DRUGS (3)
  1. ALPRAZOLAM [Suspect]
     Active Substance: ALPRAZOLAM
     Indication: Insomnia
     Route: 065
  2. ALPRAZOLAM [Suspect]
     Active Substance: ALPRAZOLAM
     Route: 065
  3. ALPRAZOLAM [Suspect]
     Active Substance: ALPRAZOLAM
     Dosage: .75 MILLIGRAM DAILY; TAKES 1.5 TABLETS
     Route: 065

REACTIONS (3)
  - Gastrointestinal hypermotility [Unknown]
  - Therapeutic response shortened [Unknown]
  - Product prescribing issue [Unknown]
